FAERS Safety Report 6000050-8 (Version None)
Quarter: 2008Q4

REPORT INFORMATION
  Report Type: 
  Country: None (occurrence: None)
  Receive Date: 20081215
  Receipt Date: 20081205
  Transmission Date: 20090506
  Serious: Yes (Death, Hospitalization)
  Sender: FDA-Public Use
  Company Number: A0760283A

PATIENT
  Age: 55 Year
  Sex: Male
  Weight: 81.8 kg

DRUGS (1)
  1. AVANDAMET [Suspect]
     Dosage: 2MG TWICE PER DAY
     Route: 065
     Dates: start: 20030115, end: 20050601

REACTIONS (1)
  - RESPIRATORY FAILURE [None]
